FAERS Safety Report 4442910-5 (Version None)
Quarter: 2004Q3

REPORT INFORMATION
  Report Type: 
  Country: None (occurrence: None)
  Receive Date: 20040907
  Receipt Date: 20040907
  Transmission Date: 20050211
  Serious: Yes (Hospitalization)
  Sender: FDA-Public Use
  Company Number: None

PATIENT
  Age: 68 Year
  Sex: Female

DRUGS (2)
  1. CISPLATIN [Suspect]
     Indication: SMALL CELL LUNG CANCER LIMITED STAGE
     Dosage: 197 MG IV X 1
     Route: 042
     Dates: start: 20040817
  2. ETOPOSIDE [Suspect]
     Dosage: 98.4 MG IV X 1
     Route: 042

REACTIONS (1)
  - APPENDICITIS [None]
